FAERS Safety Report 5148813-5 (Version None)
Quarter: 2006Q4

REPORT INFORMATION
  Report Type: 
  Country: None (occurrence: None)
  Receive Date: 20061107
  Receipt Date: 20061031
  Transmission Date: 20070319
  Serious: Yes (Death, Life-Threatening, Hospitalization)
  Sender: FDA-Public Use
  Company Number: HQ5640006DEC2002

PATIENT
  Age: 39 Year
  Sex: Male
  Weight: 60.3 kg

DRUGS (10)
  1. MYLOTARG [Suspect]
     Indication: NON-HODGKIN'S LYMPHOMA
     Dosage: 15 MG 1X PER 1 DAY, INTRAVENOUS
     Route: 042
     Dates: start: 20021126, end: 20021126
  2. KALETRA [Concomitant]
  3. EPIVIR [Concomitant]
  4. ABACAVIR [Concomitant]
  5. SYNTHROID [Concomitant]
  6. PROTONIX [Concomitant]
  7. AMOXICILLIN [Concomitant]
  8. ALLOPURINOL [Concomitant]
  9. AMPICILLIN SODIUM [Concomitant]
  10. CEFTAZIDIME [Concomitant]

REACTIONS (18)
  - ALANINE AMINOTRANSFERASE INCREASED [None]
  - ANAEMIA [None]
  - ASPARTATE AMINOTRANSFERASE INCREASED [None]
  - BLOOD CREATININE INCREASED [None]
  - ENTEROCOCCAL INFECTION [None]
  - FEBRILE NEUTROPENIA [None]
  - GASTROINTESTINAL HAEMORRHAGE [None]
  - HYPOTENSION [None]
  - LEUKOCYTOSIS [None]
  - LIVER FUNCTION TEST ABNORMAL [None]
  - METABOLIC ACIDOSIS [None]
  - MULTI-ORGAN FAILURE [None]
  - ORAL INTAKE REDUCED [None]
  - PULMONARY OEDEMA [None]
  - RED BLOOD CELL COUNT DECREASED [None]
  - SEPSIS [None]
  - TACHYPNOEA [None]
  - THROMBOCYTOPENIA [None]
